FAERS Safety Report 18339534 (Version 1)
Quarter: 2020Q3

REPORT INFORMATION
  Report Type: Spontaneous
  Country: US (occurrence: US)
  Receive Date: 20200930
  Receipt Date: 20200930
  Transmission Date: 20201103
  Serious: Yes (Death)
  Sender: FDA-Public Use
  Company Number: None

PATIENT
  Age: 72 Year
  Sex: Male
  Weight: 93 kg

DRUGS (1)
  1. LURBINECTEDIN (LURBINECTEDIN 4MG INJ) [Suspect]
     Active Substance: LURBINECTEDIN
     Indication: SMALL CELL LUNG CANCER EXTENSIVE STAGE
     Route: 042
     Dates: start: 20200909, end: 20200909

REACTIONS (3)
  - Pneumonia [None]
  - Respiratory tract infection [None]
  - Respiratory failure [None]

NARRATIVE: CASE EVENT DATE: 20200918
